FAERS Safety Report 11842777 (Version 2)
Quarter: 2015Q4

REPORT INFORMATION
  Report Type: Spontaneous
  Country: JP (occurrence: JP)
  Receive Date: 20151216
  Receipt Date: 20151217
  Transmission Date: 20160305
  Serious: Yes (Life-Threatening, Hospitalization, Other)
  Sender: FDA-Public Use
  Company Number: JP-ASTRAZENECA-2015SF20860

PATIENT
  Age: 44 Year
  Sex: Female

DRUGS (2)
  1. SEROQUEL [Suspect]
     Active Substance: QUETIAPINE FUMARATE
     Indication: PRODUCT USED FOR UNKNOWN INDICATION
     Route: 048
     Dates: start: 20151121, end: 20151121
  2. BEVERAGE ALCOHOL [Suspect]
     Active Substance: ALCOHOL
     Dates: start: 20151121, end: 20151121

REACTIONS (4)
  - Intentional overdose [Unknown]
  - Suicide attempt [Unknown]
  - Coma [Unknown]
  - Tachycardia [Unknown]

NARRATIVE: CASE EVENT DATE: 20151121
